FAERS Safety Report 19164285 (Version 1)
Quarter: 2021Q2

REPORT INFORMATION
  Report Type: Other
  Country: US (occurrence: US)
  Receive Date: 20210421
  Receipt Date: 20210421
  Transmission Date: 20210717
  Serious: Yes (Hospitalization, Other)
  Sender: FDA-Public Use
  Company Number: US-ALKERMES INC.-ALK-2021-000736

PATIENT
  Sex: Male

DRUGS (1)
  1. VIVITROL [Suspect]
     Active Substance: NALTREXONE
     Indication: PRODUCT USED FOR UNKNOWN INDICATION
     Dosage: 380 MILLIGRAM, QMO
     Route: 030

REACTIONS (5)
  - Toxicity to various agents [Unknown]
  - Withdrawal syndrome [Unknown]
  - Spinal fracture [Unknown]
  - Drug dependence [Unknown]
  - Abscess [Unknown]

NARRATIVE: CASE EVENT DATE: 2007
